FAERS Safety Report 22353872 (Version 1)
Quarter: 2023Q2

REPORT INFORMATION
  Report Type: Other
  Country: None (occurrence: US)
  Receive Date: 20230523
  Receipt Date: 20230523
  Transmission Date: 20230722
  Serious: Yes (Other)
  Sender: FDA-Public Use
  Company Number: US-Appco Pharma LLC-2141875

PATIENT
  Age: 26 Year
  Sex: Female

DRUGS (3)
  1. LABETALOL HYDROCHLORIDE [Suspect]
     Active Substance: LABETALOL HYDROCHLORIDE
     Indication: Paraganglion neoplasm
     Route: 065
  2. MAGNESIUM [Suspect]
     Active Substance: MAGNESIUM
     Route: 065
  3. NICARDIPINE [Suspect]
     Active Substance: NICARDIPINE
     Route: 065

REACTIONS (2)
  - Exposure during pregnancy [Unknown]
  - Therapeutic product effect incomplete [Unknown]
